FAERS Safety Report 24914383 (Version 1)
Quarter: 2025Q1

REPORT INFORMATION
  Report Type: Spontaneous
  Country: US (occurrence: US)
  Receive Date: 20250203
  Receipt Date: 20250203
  Transmission Date: 20250408
  Serious: No
  Sender: AUROBINDO
  Company Number: US-AUROBINDO-AUR-APL-2024-027611

PATIENT
  Age: 73 Year
  Sex: Female
  Weight: 90.718 kg

DRUGS (1)
  1. FAMOTIDINE [Suspect]
     Active Substance: FAMOTIDINE
     Indication: Reflux gastritis
     Dosage: 1 DOSAGE FORM, ONCE A DAY IN THE MORNING
     Route: 065
     Dates: start: 20240524

REACTIONS (2)
  - Abdominal distension [Unknown]
  - Abdominal discomfort [Unknown]

NARRATIVE: CASE EVENT DATE: 20240529
